FAERS Safety Report 5168875-9 (Version None)
Quarter: 2006Q4

REPORT INFORMATION
  Report Type: 
  Country: None (occurrence: None)
  Receive Date: 20061206
  Receipt Date: 20061206
  Transmission Date: 20070319
  Serious: Yes (Life-Threatening, Hospitalization)
  Sender: FDA-Public Use
  Company Number: None

PATIENT
  Age: 63 Year
  Sex: Male
  Weight: 97.5234 kg

DRUGS (3)
  1. BEXTRA [Suspect]
     Indication: OSTEOARTHRITIS
     Dosage: TWO-10MG TABLET  1 TIME A DAY MORN  PO; ONE-10MG TABLET  1 TIME A DAY EVE PO
     Route: 048
     Dates: start: 20040903, end: 20040906
  2. BEXTRA [Suspect]
     Indication: OSTEOARTHRITIS
     Dosage: TWO-10MG TABLET  1 TIME A DAY MORN  PO; ONE-10MG TABLET  1 TIME A DAY EVE PO
     Route: 048
     Dates: start: 20040903, end: 20040906
  3. BEXTRA [Suspect]

REACTIONS (2)
  - CAROTID ENDARTERECTOMY [None]
  - CEREBROVASCULAR ACCIDENT [None]
